FAERS Safety Report 19786116 (Version 5)
Quarter: 2022Q2

REPORT INFORMATION
  Report Type: Report from Study
  Country: US (occurrence: US)
  Receive Date: 20210903
  Receipt Date: 20220527
  Transmission Date: 20220721
  Serious: Yes (Hospitalization, Other)
  Sender: FDA-Public Use
  Company Number: US-MYLANLABS-2021M1058345

PATIENT
  Sex: Female

DRUGS (4)
  1. AMNESTEEM [Suspect]
     Active Substance: ISOTRETINOIN
     Indication: Product used for unknown indication
     Dosage: 40 MILLIGRAM, QD
     Dates: start: 20210113, end: 20210820
  2. Covid-19 vaccine [Concomitant]
     Dosage: UNK
     Dates: start: 20210620, end: 20210620
  3. BUSPIRONE [Concomitant]
     Active Substance: BUSPIRONE HYDROCHLORIDE
     Dosage: UNK
     Dates: start: 20210201, end: 20210827
  4. LISINOPRIL [Concomitant]
     Active Substance: LISINOPRIL
     Dosage: UNK
     Dates: start: 20210101, end: 20210827

REACTIONS (4)
  - Arrested labour [Recovered/Resolved]
  - Maternal exposure during pregnancy [Recovered/Resolved]
  - Menstruation irregular [Recovered/Resolved]
  - Product dose omission issue [Unknown]

NARRATIVE: CASE EVENT DATE: 20210101
